FAERS Safety Report 20872807 (Version 1)
Quarter: 2022Q2

REPORT INFORMATION
  Report Type: Spontaneous
  Country: IN (occurrence: IN)
  Receive Date: 20220525
  Receipt Date: 20220525
  Transmission Date: 20220720
  Serious: Yes (Hospitalization, Other)
  Sender: FDA-Public Use
  Company Number: IN-LOTUS-2022-LOTUS-048842

PATIENT
  Age: 70 Year
  Sex: Female

DRUGS (3)
  1. METHOTREXATE [Suspect]
     Active Substance: METHOTREXATE
     Indication: Interstitial lung disease
     Dosage: WEEKLY
  2. AMPHOTERICIN B [Suspect]
     Active Substance: AMPHOTERICIN B
     Indication: Staphylococcal infection
     Dosage: LIPID FORMULATION
     Route: 042
  3. ASPIRIN [Concomitant]
     Active Substance: ASPIRIN
     Indication: Hemiparesis

REACTIONS (9)
  - Mucormycosis [Recovered/Resolved]
  - Pancytopenia [Recovered/Resolved]
  - COVID-19 [Recovered/Resolved]
  - Lymphocytosis [Recovered/Resolved]
  - Cellulitis orbital [Recovered/Resolved]
  - Optic neuritis [Recovered/Resolved]
  - Blood iron decreased [Recovered/Resolved]
  - Iron binding capacity total decreased [Recovered/Resolved]
  - Epistaxis [Recovered/Resolved]
